FAERS Safety Report 10094838 (Version 1)
Quarter: 2014Q2

REPORT INFORMATION
  Report Type: Spontaneous
  Country: US (occurrence: US)
  Receive Date: 20140422
  Receipt Date: 20140422
  Transmission Date: 20141212
  Serious: Yes (Hospitalization, Other)
  Sender: FDA-Public Use
  Company Number: 2014SP002115

PATIENT
  Age: 39 Year
  Sex: Male

DRUGS (7)
  1. METHOTREXATE [Suspect]
     Indication: PRODUCT USED FOR UNKNOWN INDICATION
  2. ETANERCEPT [Suspect]
     Indication: PSORIASIS
     Route: 065
  3. ETANERCEPT [Suspect]
     Indication: PSORIATIC ARTHROPATHY
     Route: 065
  4. ETANERCEPT [Suspect]
     Indication: ANKYLOSING SPONDYLITIS
     Route: 065
  5. ETANERCEPT [Suspect]
     Indication: PSORIASIS
     Dates: start: 201401
  6. ETANERCEPT [Suspect]
     Indication: PSORIATIC ARTHROPATHY
     Dates: start: 201401
  7. ETANERCEPT [Suspect]
     Indication: ANKYLOSING SPONDYLITIS
     Dates: start: 201401

REACTIONS (6)
  - Chest pain [Recovered/Resolved]
  - Nausea [Recovered/Resolved]
  - Arthralgia [Recovering/Resolving]
  - Burning sensation [Not Recovered/Not Resolved]
  - Musculoskeletal stiffness [Not Recovered/Not Resolved]
  - Somnolence [Recovered/Resolved]
